FAERS Safety Report 15907638 (Version 1)
Quarter: 2019Q1

REPORT INFORMATION
  Report Type: Spontaneous
  Country: US (occurrence: US)
  Receive Date: 20190204
  Receipt Date: 20190204
  Transmission Date: 20190417
  Serious: Yes (Other)
  Sender: FDA-Public Use
  Company Number: US-SA-2019SA026045

PATIENT
  Age: 77 Year
  Sex: Female

DRUGS (3)
  1. CYCLOPHOSPHAMIDE. [Suspect]
     Active Substance: CYCLOPHOSPHAMIDE
     Dosage: UNK UNK, UNK
  2. LETROZOLE. [Suspect]
     Active Substance: LETROZOLE
  3. TAXOTERE [Suspect]
     Active Substance: DOCETAXEL

REACTIONS (1)
  - Disease progression [Unknown]
